FAERS Safety Report 9193372 (Version 4)
Quarter: 2013Q3

REPORT INFORMATION
  Report Type: Spontaneous
  Country: US (occurrence: US)
  Receive Date: 20130327
  Receipt Date: 20130802
  Transmission Date: 20140515
  Serious: Yes (Other)
  Sender: FDA-Public Use
  Company Number: US-PFIZER INC-2013093739

PATIENT
  Sex: Female

DRUGS (3)
  1. ZITHROMAX [Suspect]
     Dosage: UNK
  2. NORVASC [Concomitant]
     Indication: HYPERTENSION
     Dosage: UNK
  3. ATENOLOL [Concomitant]
     Indication: HYPERTENSION
     Dosage: UNK

REACTIONS (2)
  - Heart valve incompetence [Unknown]
  - Malaise [Unknown]
